FAERS Safety Report 6423537-2 (Version None)
Quarter: 2009Q4

REPORT INFORMATION
  Report Type: 
  Country: None (occurrence: None)
  Receive Date: 20091028
  Receipt Date: 20091014
  Transmission Date: 20100525
  Serious: Yes (Other)
  Sender: FDA-Public Use
  Company Number: 2009SP002744

PATIENT
  Age: 8 Year
  Sex: Female

DRUGS (3)
  1. ALVESCO [Suspect]
     Indication: ASTHMA
     Dosage: 160 UG; QD; INHALATION
     Route: 055
     Dates: start: 20080101, end: 20090901
  2. ALVESCO [Suspect]
     Indication: ASTHMA
     Dosage: 160 UG; QD; INHALATION
     Route: 055
     Dates: start: 20090901
  3. VENTOLIN [Concomitant]

REACTIONS (6)
  - ANXIETY [None]
  - ARTHRALGIA [None]
  - DEPRESSION [None]
  - DISTURBANCE IN ATTENTION [None]
  - DYSURIA [None]
  - IRRITABILITY [None]
